FAERS Safety Report 13164099 (Version 1)
Quarter: 2017Q1

REPORT INFORMATION
  Report Type: Spontaneous
  Country: US (occurrence: US)
  Receive Date: 20170130
  Receipt Date: 20170130
  Transmission Date: 20170428
  Serious: Yes (Hospitalization)
  Sender: FDA-Public Use
  Company Number: US-LPDUSPRD-20170060

PATIENT
  Age: 27 Year
  Sex: Male

DRUGS (10)
  1. TRIMETHOPRIM/SULFAMETHOXAZOLE [Concomitant]
     Active Substance: SULFAMETHOXAZOLE\TRIMETHOPRIM
  2. CYCLOSPORINE INJECTION, USP (866-10) [Suspect]
     Active Substance: CYCLOSPORINE
     Dosage: 100 MG IN THE MORNING
     Route: 065
  3. DESONIDE. [Concomitant]
     Active Substance: DESONIDE
     Route: 061
  4. MINOCYCLINE [Concomitant]
     Active Substance: MINOCYCLINE\MINOCYCLINE HYDROCHLORIDE
  5. INFLIXIMAB [Suspect]
     Active Substance: INFLIXIMAB
     Dosage: 10MG/KG
  6. ISOTRETINOIN [Concomitant]
     Active Substance: ISOTRETINOIN
     Route: 048
  7. NO DRUG NAME [Concomitant]
  8. PREDNISONE. [Suspect]
     Active Substance: PREDNISONE
     Dosage: 60MG
  9. METRONIDAZOLE. [Concomitant]
     Active Substance: METRONIDAZOLE
     Route: 061
  10. DAPSONE. [Concomitant]
     Active Substance: DAPSONE

REACTIONS (1)
  - Mycobacterium marinum infection [Recovered/Resolved]
